FAERS Safety Report 16111600 (Version 1)
Quarter: 2019Q2

REPORT INFORMATION
  Report Type: Spontaneous
  Country: US (occurrence: US)
  Receive Date: 20190322
  Receipt Date: 20190322
  Transmission Date: 20190711
  Serious: Yes (Hospitalization)
  Sender: FDA-Public Use
  Company Number: None

PATIENT
  Age: 61 Year
  Sex: Female

DRUGS (11)
  1. SILDENAFIL. [Suspect]
     Active Substance: SILDENAFIL
     Indication: PULMONARY ARTERIAL HYPERTENSION
     Route: 048
  2. MYCOPHENOLATE [Concomitant]
     Active Substance: MYCOPHENOLIC ACID
  3. TADALAFIL. [Concomitant]
     Active Substance: TADALAFIL
  4. SPIRONOLACT [Concomitant]
     Active Substance: SPIRONOLACTONE
  5. ATENOLOL. [Concomitant]
     Active Substance: ATENOLOL
  6. ADCIRCA [Concomitant]
     Active Substance: TADALAFIL
  7. DIGOX [Concomitant]
     Active Substance: DIGOXIN
  8. BUMETANIDE. [Concomitant]
     Active Substance: BUMETANIDE
  9. ATORVASTATIN [Concomitant]
     Active Substance: ATORVASTATIN
  10. LISINOPRIL/HCTZ [Concomitant]
     Active Substance: HYDROCHLOROTHIAZIDE\LISINOPRIL
  11. LEVOTHYROXINE. [Concomitant]
     Active Substance: LEVOTHYROXINE

REACTIONS (3)
  - Angiogram [None]
  - Pulmonary arterial hypertension [None]
  - Hospitalisation [None]

NARRATIVE: CASE EVENT DATE: 20190213
